FAERS Safety Report 12936857 (Version 1)
Quarter: 2016Q4

REPORT INFORMATION
  Report Type: Spontaneous
  Country: US (occurrence: US)
  Receive Date: 20161114
  Receipt Date: 20161114
  Transmission Date: 20170207
  Serious: Yes (Other)
  Sender: FDA-Public Use
  Company Number: US-BAYER-2016-215667

PATIENT
  Age: 34 Year
  Sex: Female

DRUGS (1)
  1. SKYLA [Suspect]
     Active Substance: LEVONORGESTREL
     Dosage: 14 MCG/24HR, CONT
     Route: 015
     Dates: start: 20161021

REACTIONS (6)
  - Device dislocation [None]
  - Pollakiuria [None]
  - Urine output decreased [None]
  - Vomiting [None]
  - Pelvic discomfort [None]
  - Patient-device incompatibility [None]

NARRATIVE: CASE EVENT DATE: 2016
